FAERS Safety Report 6733478-9 (Version None)
Quarter: 2010Q2

REPORT INFORMATION
  Report Type: 
  Country: None (occurrence: None)
  Receive Date: 20100520
  Receipt Date: 20100510
  Transmission Date: 20101027
  Serious: Yes (Death)
  Sender: FDA-Public Use
  Company Number: PHHY2010JP14072

PATIENT
  Sex: Female
  Weight: 37 kg

DRUGS (12)
  1. ICL670A ICL+DISTAB [Suspect]
     Indication: IRON OVERLOAD
     Dosage: 1000 MG, QD
     Route: 048
     Dates: start: 20100122, end: 20100127
  2. ICL670A ICL+DISTAB [Suspect]
     Dosage: 500 MG, QD
     Route: 048
     Dates: start: 20100128, end: 20100201
  3. ITRIZOLE [Concomitant]
     Indication: PROPHYLAXIS
     Dosage: 100 MG, UNK
     Dates: start: 20100121, end: 20100208
  4. MEIACT [Concomitant]
     Indication: PROPHYLAXIS
     Dosage: 300 MG, QD
     Route: 048
     Dates: start: 20100121, end: 20100129
  5. DUROTEP [Concomitant]
     Indication: ACUTE MYELOID LEUKAEMIA
     Dosage: 2.8 MG, UNK
     Route: 062
     Dates: start: 20100121, end: 20100215
  6. NOVANTRONE [Concomitant]
     Indication: ACUTE MYELOID LEUKAEMIA
     Dosage: 15 MG, UNK
     Route: 042
     Dates: start: 20100125, end: 20100204
  7. FLOMOX [Concomitant]
     Indication: PROPHYLAXIS
     Dosage: 300 MG, UNK
     Route: 048
     Dates: start: 20100130, end: 20100215
  8. RED BLOOD CELLS [Concomitant]
  9. BIOFERMIN [Concomitant]
     Indication: PROPHYLAXIS
     Dosage: UNK
     Route: 048
     Dates: start: 20100121, end: 20100215
  10. FAMOTIDINE [Concomitant]
     Indication: PROPHYLAXIS
     Dosage: 20 MG, UNK
     Route: 048
     Dates: start: 20100121, end: 20100215
  11. ZOVIRAX [Concomitant]
     Indication: PROPHYLAXIS
     Dosage: 200 MG, UNK
     Route: 048
     Dates: start: 20100121, end: 20100215
  12. PLATELETS [Concomitant]
     Dosage: UNK
     Dates: start: 20100122, end: 20100215

REACTIONS (4)
  - BLOOD CREATININE INCREASED [None]
  - BLOOD UREA INCREASED [None]
  - GENERAL PHYSICAL HEALTH DETERIORATION [None]
  - MALIGNANT NEOPLASM PROGRESSION [None]
